APPROVED DRUG PRODUCT: METHYCLOTHIAZIDE
Active Ingredient: METHYCLOTHIAZIDE
Strength: 2.5MG
Dosage Form/Route: TABLET;ORAL
Application: A089835 | Product #001
Applicant: CHARTWELL RX SCIENCES LLC
Approved: Aug 18, 1988 | RLD: No | RS: No | Type: DISCN